FAERS Safety Report 24903930 (Version 1)
Quarter: 2025Q1

REPORT INFORMATION
  Report Type: Spontaneous
  Country: US (occurrence: US)
  Receive Date: 20250130
  Receipt Date: 20250130
  Transmission Date: 20250409
  Serious: No
  Sender: Tarsus Pharmaceuticals
  Company Number: US-TARSUS PHARMACEUTICALS-TSP-US-2024-000623

PATIENT
  Age: 72 Year
  Sex: Female
  Weight: 49.433 kg

DRUGS (2)
  1. XDEMVY [Suspect]
     Active Substance: LOTILANER
     Indication: Demodex blepharitis
     Dosage: 1 DROP, BID (PER EYE TWICE A DAY)
     Route: 047
     Dates: start: 20241217, end: 20241222
  2. XDEMVY [Suspect]
     Active Substance: LOTILANER
     Dosage: 1 DROP, BID (STARTED USING FROM NIGHT)
     Route: 047
     Dates: start: 20241223

REACTIONS (2)
  - Suspected product contamination [Unknown]
  - Intentional dose omission [Unknown]

NARRATIVE: CASE EVENT DATE: 20241222
